FAERS Safety Report 7986263-4 (Version None)
Quarter: 2011Q4

REPORT INFORMATION
  Report Type: 
  Country: None (occurrence: None)
  Receive Date: 20111216
  Receipt Date: 20110207
  Transmission Date: 20120403
  Serious: No
  Sender: FDA-Public Use
  Company Number: US-BRISTOL-MYERS SQUIBB COMPANY-15500317

PATIENT
  Age: 4 Decade
  Sex: Female

DRUGS (2)
  1. ABILIFY [Suspect]
     Indication: BIPOLAR DISORDER
     Dosage: INITIALLY 15 MG. THEN DECREASED 7.5MG, 5MG AND THEN 2.5MG
     Route: 048
     Dates: start: 20100927
  2. SEROQUEL [Suspect]
     Dosage: 1DF=25MG-75UNITS NOS DURATION OF THERAPY:FEW WEEKS
     Dates: start: 20100127

REACTIONS (3)
  - DYSARTHRIA [None]
  - DYSKINESIA [None]
  - AKATHISIA [None]
